FAERS Safety Report 11286673 (Version 1)
Quarter: 2015Q2

REPORT INFORMATION
  Report Type: Spontaneous
  Country: US (occurrence: None)
  Receive Date: 20150623
  Receipt Date: 20150623
  Transmission Date: 20150821
  Serious: Yes (Hospitalization, Other)
  Sender: FDA-Public Use
  Company Number: RB-65891-2014

PATIENT
  Age: 90 Year
  Sex: Male

DRUGS (3)
  1. METOPROLOL [Concomitant]
     Active Substance: METOPROLOL
  2. MUCINEX DM [Suspect]
     Active Substance: DEXTROMETHORPHAN HYDROBROMIDE\GUAIFENESIN
     Indication: PRODUCT USED FOR UNKNOWN INDICATION
     Dosage: (600 MG 1X/12 HOURS, 1 EVERY 12 HOURS ORAL)
     Route: 048
     Dates: start: 20140506
  3. PREDNISONE. [Concomitant]
     Active Substance: PREDNISONE

REACTIONS (1)
  - Confusional state [None]

NARRATIVE: CASE EVENT DATE: 20140508
